FAERS Safety Report 5478706-5 (Version None)
Quarter: 2007Q4

REPORT INFORMATION
  Report Type: 
  Country: None (occurrence: None)
  Receive Date: 20071005
  Receipt Date: 20071001
  Transmission Date: 20080405
  Serious: Yes (Other)
  Sender: FDA-Public Use
  Company Number: BR-ROXANE LABORATORIES, INC-2007-DE-05850GD

PATIENT
  Sex: Female

DRUGS (3)
  1. PREDNISONE [Suspect]
     Indication: ASTHMA
     Dates: start: 20020101
  2. PREDNISONE [Suspect]
     Indication: MYASTHENIA GRAVIS
  3. AZATHIOPRINE [Concomitant]
     Indication: MYASTHENIA GRAVIS

REACTIONS (2)
  - CUSHINGOID [None]
  - DRUG INEFFECTIVE [None]
